FAERS Safety Report 7804813-5 (Version None)
Quarter: 2011Q4

REPORT INFORMATION
  Report Type: 
  Country: None (occurrence: None)
  Receive Date: 20111010
  Receipt Date: 20111005
  Transmission Date: 20120403
  Serious: Yes (Life-Threatening, Hospitalization)
  Sender: FDA-Public Use
  Company Number: CA-MEDIMMUNE-MEDI-0013665

PATIENT
  Age: 2 Month
  Sex: Male

DRUGS (2)
  1. INFANRIX [Suspect]
     Route: 030
  2. SYNAGIS [Suspect]
     Route: 030

REACTIONS (4)
  - PALLOR [None]
  - DYSPNOEA [None]
  - LIVEDO RETICULARIS [None]
  - SKIN DISCOLOURATION [None]
